FAERS Safety Report 6137020-5 (Version None)
Quarter: 2009Q1

REPORT INFORMATION
  Report Type: 
  Country: None (occurrence: None)
  Receive Date: 20090330
  Receipt Date: 20090320
  Transmission Date: 20090719
  Serious: Yes (Other)
  Sender: FDA-Public Use
  Company Number: US-ELI_LILLY_AND_COMPANY-US200903005379

PATIENT
  Sex: Female

DRUGS (2)
  1. EVISTA [Suspect]
     Indication: BONE DISORDER
     Dosage: UNK, UNKNOWN
     Route: 065
  2. LEVOTHYROXINE [Concomitant]
     Dosage: UNK, UNKNOWN
     Route: 065

REACTIONS (1)
  - RETINAL TEAR [None]
